FAERS Safety Report 7326744-X (Version None)
Quarter: 2011Q1

REPORT INFORMATION
  Report Type: 
  Country: None (occurrence: None)
  Receive Date: 20110302
  Receipt Date: 20090925
  Transmission Date: 20110831
  Serious: No
  Sender: FDA-Public Use
  Company Number: US-PFIZER INC-2009253996

PATIENT

DRUGS (2)
  1. VFEND [Suspect]
     Indication: ENDOCARDITIS CANDIDA
     Dosage: UNK
  2. CYCLOSPORINE [Interacting]

REACTIONS (2)
  - DRUG INTERACTION [None]
  - NEUROPATHY PERIPHERAL [None]
